FAERS Safety Report 12166045 (Version 2)
Quarter: 2016Q2

REPORT INFORMATION
  Report Type: Spontaneous
  Country: US (occurrence: US)
  Receive Date: 20160309
  Receipt Date: 20160414
  Transmission Date: 20160815
  Serious: Yes (Other)
  Sender: FDA-Public Use
  Company Number: US-ABBOTT MEDICAL OPTICS-1048856

PATIENT
  Age: 71 Year
  Sex: Female

DRUGS (1)
  1. BLINK TEARS [Suspect]
     Active Substance: POLYETHYLENE GLYCOL 400
     Indication: DRY EYE
     Route: 047

REACTIONS (5)
  - Product container issue [None]
  - Product contamination physical [None]
  - Foreign body in eye [None]
  - Expired product administered [None]
  - Instillation site foreign body sensation [Recovering/Resolving]
